FAERS Safety Report 4570640-8 (Version None)
Quarter: 2005Q1

REPORT INFORMATION
  Report Type: 
  Country: None (occurrence: None)
  Receive Date: 20050202
  Receipt Date: 20050121
  Transmission Date: 20050727
  Serious: Yes (Other)
  Sender: FDA-Public Use
  Company Number: JP-SHR-03-002988

PATIENT
  Age: 51 Year
  Sex: Female
  Weight: 48 kg

DRUGS (20)
  1. BETAFERON (INTERFERON BETA - 1B) INJECTION [Suspect]
     Indication: RELAPSING-REMITTING MULTIPLE SCLEROSIS
     Dosage: SEE IMAGE
     Route: 058
     Dates: start: 20010409, end: 20010418
  2. BETAFERON (INTERFERON BETA - 1B) INJECTION [Suspect]
     Indication: RELAPSING-REMITTING MULTIPLE SCLEROSIS
     Dosage: SEE IMAGE
     Route: 058
     Dates: start: 20010419, end: 20010430
  3. BETAFERON (INTERFERON BETA - 1B) INJECTION [Suspect]
     Indication: RELAPSING-REMITTING MULTIPLE SCLEROSIS
     Dosage: SEE IMAGE
     Route: 058
     Dates: start: 20010501
  4. MUCOSTA (REBAMIPIDE) TABLET [Suspect]
     Indication: PROPHYLAXIS AGAINST GASTROINTESTINAL ULCER
     Dosage: 300 MG, 1X/DAY, ORAL
     Route: 048
     Dates: start: 20020426, end: 20030205
  5. MUCOSTA (REBAMIPIDE) TABLET [Suspect]
     Indication: PROPHYLAXIS AGAINST GASTROINTESTINAL ULCER
     Dosage: 300 MG, 1X/DAY, ORAL
     Route: 048
     Dates: start: 20010307
  6. TEGRETOL [Suspect]
     Indication: RELAPSING-REMITTING MULTIPLE SCLEROSIS
     Dosage: 400-600 MG, 1X/DAY, ORAL; 200-300 MG, 1X/DAY, ORAL
     Route: 048
     Dates: start: 20020426, end: 20030205
  7. TEGRETOL [Suspect]
     Indication: RELAPSING-REMITTING MULTIPLE SCLEROSIS
     Dosage: 400-600 MG, 1X/DAY, ORAL; 200-300 MG, 1X/DAY, ORAL
     Route: 048
     Dates: start: 20010529
  8. LANSOPRAZOLE [Suspect]
     Indication: GASTRIC ULCER
     Dosage: 30 MG, 1X/DAY, ORAL
     Route: 048
     Dates: start: 20021206, end: 20030205
  9. TIZANIDINE HCL [Concomitant]
  10. ZANTAC [Concomitant]
  11. SOLU-MEDROL [Concomitant]
  12. GLYCEOL (GLYCEROL, FRUCTOSE) [Concomitant]
  13. PREDONINE [Concomitant]
  14. ISCOTIN (ISONIAZID) TABLET [Concomitant]
  15. MUCODYNE (CARBOCISTEINE) [Concomitant]
  16. MUCOSOLVAN [Concomitant]
  17. RIMACTANE [Concomitant]
  18. VITAMEDIN (BENFOTIAMINE) [Concomitant]
  19. VOLTAREN [Concomitant]
  20. FAMOTIDINE [Concomitant]

REACTIONS (3)
  - HAEMOLYTIC ANAEMIA [None]
  - LEUKOPENIA [None]
  - NEUTROPENIA [None]
